FAERS Safety Report 7758892-4 (Version None)
Quarter: 2011Q3

REPORT INFORMATION
  Report Type: 
  Country: None (occurrence: None)
  Receive Date: 20110915
  Receipt Date: 20110908
  Transmission Date: 20111222
  Serious: Yes (Hospitalization, Other)
  Sender: FDA-Public Use
  Company Number: US-001933

PATIENT
  Sex: Female
  Weight: 21.8 kg

DRUGS (5)
  1. TYLENOL-500 [Concomitant]
  2. NAGLAZYME [Suspect]
     Indication: MUCOPOLYSACCHARIDOSIS VI
     Dosage: 1 MG/KG 1X/WEEK, INTRAVENOUS DRIP
     Route: 041
     Dates: start: 20090409
  3. ZYRTEC [Concomitant]
  4. ALBUTEROL [Concomitant]
  5. ROCEPHIN [Concomitant]

REACTIONS (1)
  - PNEUMONIA [None]
